FAERS Safety Report 19655335 (Version 2)
Quarter: 2021Q3

REPORT INFORMATION
  Report Type: Spontaneous
  Country: JP (occurrence: JP)
  Receive Date: 20210803
  Receipt Date: 20210825
  Transmission Date: 20211014
  Serious: Yes (Hospitalization, Other)
  Sender: FDA-Public Use
  Company Number: JP-JNJFOC-20210802898

PATIENT
  Age: 89 Year
  Sex: Male

DRUGS (1)
  1. ERLEADA [Suspect]
     Active Substance: APALUTAMIDE
     Indication: PROSTATE CANCER
     Route: 048
     Dates: start: 20210409, end: 20210622

REACTIONS (7)
  - Dehydration [Not Recovered/Not Resolved]
  - Rash [Recovering/Resolving]
  - Gait disturbance [Not Recovered/Not Resolved]
  - Feeding disorder [Unknown]
  - Haematochezia [Recovered/Resolved]
  - Interstitial lung disease [Not Recovered/Not Resolved]
  - Oedema [Recovering/Resolving]

NARRATIVE: CASE EVENT DATE: 202106
